FAERS Safety Report 9679174 (Version 1)
Quarter: 2013Q4

REPORT INFORMATION
  Report Type: Spontaneous
  Country: KR (occurrence: None)
  Receive Date: 20131107
  Receipt Date: 20131107
  Transmission Date: 20140711
  Serious: Yes (Other)
  Sender: FDA-Public Use
  Company Number: 2013-003385

PATIENT
  Age: 68 Year
  Sex: Female

DRUGS (1)
  1. ACTONEL [Suspect]
     Route: 048

REACTIONS (4)
  - Femur fracture [None]
  - Stress fracture [None]
  - Pathological fracture [None]
  - Pain in extremity [None]
